FAERS Safety Report 9461340 (Version 1)
Quarter: 2013Q3

REPORT INFORMATION
  Report Type: Spontaneous
  Country: US (occurrence: None)
  Receive Date: 20130814
  Receipt Date: 20130814
  Transmission Date: 20140515
  Serious: No
  Sender: FDA-Public Use
  Company Number: None

PATIENT
  Age: 65 Year
  Sex: Female
  Weight: 80.29 kg

DRUGS (5)
  1. RECLAST [Suspect]
     Indication: OSTEOPOROSIS
     Dates: start: 20130506
  2. MULTIVITAMINS [Concomitant]
  3. OMEGA-3 [Concomitant]
  4. GREEN TEA [Concomitant]
  5. VTE E [Concomitant]

REACTIONS (27)
  - Dizziness [None]
  - Nausea [None]
  - Syncope [None]
  - Hypoaesthesia eye [None]
  - Hypoaesthesia oral [None]
  - Hypoaesthesia oral [None]
  - Muscle spasms [None]
  - Pruritus generalised [None]
  - Dysphagia [None]
  - Throat tightness [None]
  - Tinnitus [None]
  - Burning sensation [None]
  - Burning sensation [None]
  - Myalgia [None]
  - Arthralgia [None]
  - Rash [None]
  - Pollakiuria [None]
  - Thirst [None]
  - Muscle tightness [None]
  - Facial pain [None]
  - Headache [None]
  - Feeling abnormal [None]
  - Confusional state [None]
  - Fatigue [None]
  - Gingival pain [None]
  - Tenderness [None]
  - Malaise [None]
